FAERS Safety Report 4616889-7 (Version None)
Quarter: 2005Q1

REPORT INFORMATION
  Report Type: 
  Country: None (occurrence: None)
  Receive Date: 20050321
  Receipt Date: 20050308
  Transmission Date: 20050727
  Serious: Yes (Other)
  Sender: FDA-Public Use
  Company Number: 2005042889

PATIENT
  Age: 51 Year
  Sex: Female

DRUGS (3)
  1. CELEBRA (CELECOXIB) [Suspect]
     Indication: OSTEOARTHRITIS
     Dosage: 100-200 MG (100 MG, 1-2), ORAL
     Route: 048
     Dates: start: 20010307, end: 20041001
  2. ENALAPRIL MALEATE [Concomitant]
  3. GLUCOSAMINE (GLUCOSAMINE) [Concomitant]

REACTIONS (2)
  - HAEMATOMA [None]
  - THROMBOSIS [None]
